FAERS Safety Report 6521164-X (Version None)
Quarter: 2009Q4

REPORT INFORMATION
  Report Type: 
  Country: None (occurrence: None)
  Receive Date: 20091222
  Receipt Date: 20091211
  Transmission Date: 20100525
  Serious: Yes (Hospitalization)
  Sender: FDA-Public Use
  Company Number: 2009US004419

PATIENT
  Age: 74 Year
  Sex: Male

DRUGS (1)
  1. LEXISCAN [Suspect]
     Indication: SCAN MYOCARDIAL PERFUSION
     Dosage: 0.4 MG, TOTAL DOSE, IV NOS
     Route: 042
     Dates: start: 20091208, end: 20091208

REACTIONS (3)
  - CEREBROVASCULAR ACCIDENT [None]
  - DYSPNOEA [None]
  - HEADACHE [None]
